FAERS Safety Report 24309838 (Version 2)
Quarter: 2024Q4

REPORT INFORMATION
  Report Type: Spontaneous
  Country: US (occurrence: US)
  Receive Date: 20240912
  Receipt Date: 20241002
  Transmission Date: 20250114
  Serious: No
  Sender: ROCHE
  Company Number: US-ROCHE-10000074358

PATIENT
  Sex: Female
  Weight: 66.68 kg

DRUGS (3)
  1. ESBRIET [Suspect]
     Active Substance: PIRFENIDONE
     Indication: Idiopathic pulmonary fibrosis
     Dosage: APR-2023, AND JUN-2024
     Route: 048
     Dates: start: 202202
  2. ESBRIET [Suspect]
     Active Substance: PIRFENIDONE
     Dosage: RECENT ADMINISTRATION: JUN-2024
     Route: 048
     Dates: start: 202304
  3. TRAZODONE [Suspect]
     Active Substance: TRAZODONE HYDROCHLORIDE
     Indication: Product used for unknown indication
     Route: 065

REACTIONS (1)
  - Dry mouth [Recovered/Resolved]
